FAERS Safety Report 10707643 (Version 1)
Quarter: 2015Q1

REPORT INFORMATION
  Report Type: Spontaneous
  Country: US (occurrence: None)
  Receive Date: 20150112
  Receipt Date: 20150112
  Transmission Date: 20150721
  Serious: Yes (Other)
  Sender: FDA-Public Use
  Company Number: None

PATIENT
  Age: 46 Year
  Sex: Female

DRUGS (15)
  1. LEVOTHYROXINE [Concomitant]
     Active Substance: LEVOTHYROXINE
  2. LASIX [Concomitant]
     Active Substance: FUROSEMIDE
  3. SOVALDI [Suspect]
     Active Substance: SOFOSBUVIR
     Indication: CHRONIC HEPATITIS C
     Route: 048
     Dates: start: 20141219
  4. MAG-OXIDE [Concomitant]
  5. RIBASPHERE [Suspect]
     Active Substance: RIBAVIRIN
     Route: 048
     Dates: start: 20141219
  6. Q-PAP [Concomitant]
     Active Substance: ACETAMINOPHEN
  7. PANTOPRAZOLE [Concomitant]
     Active Substance: PANTOPRAZOLE SODIUM
  8. MIDODRINE [Concomitant]
     Active Substance: MIDODRINE
  9. ONDANSETRON ODT [Concomitant]
     Active Substance: ONDANSETRON
  10. MYCOPHENOLIC [Concomitant]
     Active Substance: MYCOPHENOLIC ACID
  11. ASPIRIN. [Concomitant]
     Active Substance: ASPIRIN
  12. TACROLIMUS. [Concomitant]
     Active Substance: TACROLIMUS
  13. GAS-X [Concomitant]
     Active Substance: DIMETHICONE
  14. METOPROLOL ER SUCCINATE [Concomitant]
     Active Substance: METOPROLOL SUCCINATE
  15. NEXIUM [Concomitant]
     Active Substance: ESOMEPRAZOLE MAGNESIUM

REACTIONS (2)
  - Weight increased [None]
  - Headache [None]
